FAERS Safety Report 7957582-2 (Version None)
Quarter: 2011Q4

REPORT INFORMATION
  Report Type: 
  Country: None (occurrence: None)
  Receive Date: 20111205
  Receipt Date: 20111129
  Transmission Date: 20120403
  Serious: Yes (Hospitalization)
  Sender: FDA-Public Use
  Company Number: JP-GLAXOSMITHKLINE-B0766610A

PATIENT
  Age: 58 Year
  Sex: Female

DRUGS (2)
  1. CEFTRIAXONE [Concomitant]
     Indication: PYREXIA
     Dates: start: 20111124, end: 20111128
  2. VALTREX [Suspect]
     Indication: HERPES ZOSTER
     Dosage: 3000MG PER DAY
     Route: 065
     Dates: start: 20111117, end: 20111121

REACTIONS (2)
  - PYREXIA [None]
  - INTERSTITIAL LUNG DISEASE [None]
